FAERS Safety Report 4836467-4 (Version None)
Quarter: 2005Q4

REPORT INFORMATION
  Report Type: 
  Country: None (occurrence: None)
  Receive Date: 20051123
  Receipt Date: 20051118
  Transmission Date: 20060501
  Serious: Yes (Other)
  Sender: FDA-Public Use
  Company Number: PHEH2005US12727

PATIENT
  Age: 56 Year
  Sex: Male

DRUGS (1)
  1. CLOZARIL [Suspect]
     Dosage: 275 MG, QD
     Route: 048
     Dates: start: 20050701

REACTIONS (4)
  - OPTIC NEURITIS [None]
  - PAPILLITIS [None]
  - VISION BLURRED [None]
  - VISUAL ACUITY REDUCED [None]
